FAERS Safety Report 12756194 (Version 3)
Quarter: 2016Q4

REPORT INFORMATION
  Report Type: Spontaneous
  Country: US (occurrence: US)
  Receive Date: 20160916
  Receipt Date: 20161102
  Transmission Date: 20170207
  Serious: No
  Sender: FDA-Public Use
  Company Number: US-GLAXOSMITHKLINE-US2016134266

PATIENT
  Age: 60 Year
  Sex: Female
  Weight: 59.86 kg

DRUGS (1)
  1. TRANSDERM SCOP [Suspect]
     Active Substance: SCOPOLAMINE
     Indication: HYPOBARISM
     Dosage: UNK
     Dates: start: 20160821, end: 20160829

REACTIONS (3)
  - Application site pruritus [Recovered/Resolved]
  - Intentional product misuse [Unknown]
  - Drug ineffective [Unknown]

NARRATIVE: CASE EVENT DATE: 20160821
